FAERS Safety Report 9767827 (Version 1)
Quarter: 2013Q4

REPORT INFORMATION
  Report Type: Spontaneous
  Country: US (occurrence: None)
  Receive Date: 20131213
  Receipt Date: 20131213
  Transmission Date: 20140711
  Serious: Yes (Other)
  Sender: FDA-Public Use
  Company Number: DSU-2013-05309

PATIENT
  Age: 71 Year
  Sex: Male

DRUGS (3)
  1. BENICAR [Suspect]
     Indication: HYPERTENSION
     Route: 048
     Dates: end: 201311
  2. VITAMIN D (ERGOCALCIFEROL) [Concomitant]
  3. MULTIVITAMIN (ASCORBIC ACID, PYRIDOXINE HYDROCHLORIDE, THIAMINE HYDROCHLORIDE, COLECALCIFEROL, RETINOL, RIBOFLAVIN, NICOTINAMIDE) [Concomitant]

REACTIONS (4)
  - Pyrexia [None]
  - Sleep apnoea syndrome [None]
  - Thyroid neoplasm [None]
  - Blood pressure increased [None]
